FAERS Safety Report 18383481 (Version 2)
Quarter: 2020Q4

REPORT INFORMATION
  Report Type: Spontaneous
  Country: US (occurrence: US)
  Receive Date: 20201014
  Receipt Date: 20201216
  Transmission Date: 20210114
  Serious: Yes (Other)
  Sender: FDA-Public Use
  Company Number: NVSC2020US271205

PATIENT
  Sex: Female

DRUGS (2)
  1. PROMACTA [Suspect]
     Active Substance: ELTROMBOPAG OLAMINE
     Indication: APLASTIC ANAEMIA
     Dosage: 150 MG, QD
     Route: 048
     Dates: start: 20200728
  2. PREDNISONE. [Suspect]
     Active Substance: PREDNISONE
     Indication: PRODUCT USED FOR UNKNOWN INDICATION
     Dosage: UNK
     Route: 065

REACTIONS (13)
  - Eye pruritus [Unknown]
  - Lacrimation increased [Unknown]
  - Feeling cold [Unknown]
  - Arthralgia [Unknown]
  - Asthenia [Unknown]
  - Alopecia [Unknown]
  - Limb discomfort [Unknown]
  - Swelling face [Unknown]
  - Nausea [Unknown]
  - Visual impairment [Unknown]
  - Burning sensation [Unknown]
  - Hyperbilirubinaemia [Unknown]
  - Food allergy [Unknown]
